FAERS Safety Report 15929490 (Version 1)
Quarter: 2019Q1

REPORT INFORMATION
  Report Type: Spontaneous
  Country: US (occurrence: US)
  Receive Date: 20190206
  Receipt Date: 20190206
  Transmission Date: 20190417
  Serious: No
  Sender: FDA-Public Use
  Company Number: US-009507513-1902USA000957

PATIENT
  Age: 62 Year
  Sex: Male

DRUGS (3)
  1. WARFARIN [Concomitant]
     Active Substance: WARFARIN
  2. ACYCLOVIR. [Concomitant]
     Active Substance: ACYCLOVIR
  3. PREGNYL [Suspect]
     Active Substance: CHORIOGONADOTROPIN ALFA
     Indication: ANDROGEN DEFICIENCY
     Dosage: 1.5 MILLILITER 3X PER WEEK

REACTIONS (4)
  - Androgen deficiency [Not Recovered/Not Resolved]
  - Product dose omission [Unknown]
  - Product availability issue [Not Recovered/Not Resolved]
  - Fatigue [Not Recovered/Not Resolved]

NARRATIVE: CASE EVENT DATE: 201808
